FAERS Safety Report 8764141 (Version 1)
Quarter: 2012Q4

REPORT INFORMATION
  Report Type: 
  Country: JP (occurrence: US)
  Receive Date: 20120831
  Receipt Date: 20120831
  Transmission Date: 20130627
  Serious: Yes (Other)
  Sender: FDA-Public Use
  Company Number: US-JNJFOC-20100707081

PATIENT
  Sex: Female

DRUGS (5)
  1. LEVAQUIN [Suspect]
     Indication: URINARY TRACT INFECTION
     Route: 048
  2. LEVAQUIN [Suspect]
     Indication: BRONCHITIS
     Route: 048
  3. LEVAQUIN [Suspect]
     Indication: PNEUMONIA
     Route: 048
  4. PREDNISONE [Suspect]
     Indication: BRONCHIAL HYPERREACTIVITY
     Route: 065
  5. PREDNISONE [Suspect]
     Indication: POLYMYALGIA RHEUMATICA
     Route: 065

REACTIONS (5)
  - Rotator cuff syndrome [Unknown]
  - Rotator cuff syndrome [Recovering/Resolving]
  - Tendon injury [Unknown]
  - Tendonitis [Unknown]
  - Tendonitis [Unknown]
